FAERS Safety Report 14182130 (Version 2)
Quarter: 2018Q1

REPORT INFORMATION
  Report Type: Report from Study
  Country: DE (occurrence: DE)
  Receive Date: 20171113
  Receipt Date: 20180319
  Transmission Date: 20180508
  Serious: Yes (Death, Hospitalization, Other)
  Sender: FDA-Public Use
  Company Number: DE-ROCHE-2023483

PATIENT
  Sex: Female
  Weight: 62 kg

DRUGS (9)
  1. PALLADON [Concomitant]
     Active Substance: HYDROMORPHONE
     Route: 065
     Dates: start: 20120125
  2. NOVALGIN (METAMIZOLE SODIUM) [Concomitant]
     Active Substance: METAMIZOLE SODIUM
     Route: 065
  3. AMINEURIN [Concomitant]
     Active Substance: AMITRIPTYLINE HYDROCHLORIDE
     Route: 065
  4. TEMSIROLIMUS [Concomitant]
     Active Substance: TEMSIROLIMUS
  5. PANTOZOL [Concomitant]
     Active Substance: PANTOPRAZOLE SODIUM
     Route: 065
  6. L-THYROXIN [Concomitant]
     Active Substance: LEVOTHYROXINE SODIUM
     Route: 065
  7. INTERFERON ALFA-2A [Suspect]
     Active Substance: INTERFERON ALFA-2A
     Indication: METASTATIC RENAL CELL CARCINOMA
     Route: 058
     Dates: start: 20101129, end: 201201
  8. BEVACIZUMAB. [Suspect]
     Active Substance: BEVACIZUMAB
     Indication: METASTATIC RENAL CELL CARCINOMA
     Route: 042
     Dates: start: 20101207, end: 20120125
  9. TOREM [Concomitant]
     Active Substance: TORSEMIDE
     Route: 065

REACTIONS (17)
  - Nausea [Not Recovered/Not Resolved]
  - Pulmonary hypertension [Recovering/Resolving]
  - Malignant neoplasm progression [Fatal]
  - Tricuspid valve incompetence [Recovering/Resolving]
  - Pancytopenia [Unknown]
  - Dizziness [Recovered/Resolved]
  - Mitral valve incompetence [Recovering/Resolving]
  - Epistaxis [Unknown]
  - Cardiac failure [Recovering/Resolving]
  - Cardiomyopathy [Recovering/Resolving]
  - Pleural effusion [Recovering/Resolving]
  - Haemorrhage [Unknown]
  - Vomiting [Not Recovered/Not Resolved]
  - Fatigue [Not Recovered/Not Resolved]
  - Bundle branch block left [Recovering/Resolving]
  - Weight decreased [Unknown]
  - Aortic valve sclerosis [Recovering/Resolving]

NARRATIVE: CASE EVENT DATE: 201101
